FAERS Safety Report 8068655-0 (Version None)
Quarter: 2012Q1

REPORT INFORMATION
  Report Type: 
  Country: None (occurrence: None)
  Receive Date: 20120124
  Receipt Date: 20111118
  Transmission Date: 20120608
  Serious: No
  Sender: FDA-Public Use
  Company Number: US-AMGEN-USASP2011031364

PATIENT
  Age: 84 Year
  Sex: Female
  Weight: 46.259 kg

DRUGS (11)
  1. ALPRAZOLAM [Concomitant]
     Dosage: 0.25 MG, UNK
  2. ATENOLOL [Concomitant]
  3. SYNTHROID [Concomitant]
     Dosage: 88 MG, UNK
  4. AMIODARONE HCL [Concomitant]
     Dosage: 100 MG, UNK
  5. COUMADIN [Concomitant]
     Dosage: 3 MG, UNK
  6. FUROSEMIDE [Concomitant]
     Dosage: 20 MG, UNK
  7. LIPITOR [Concomitant]
     Dosage: 5 MG, UNK
  8. PROLIA [Suspect]
     Indication: OSTEOPOROSIS POSTMENOPAUSAL
     Dosage: 60 MG, Q6MO
     Dates: start: 20110510
  9. AVAPRO [Concomitant]
  10. EVISTA [Concomitant]
     Dosage: 60 MG, UNK
  11. CALCIUM W/VITAMIN D                /00188401/ [Concomitant]

REACTIONS (1)
  - LYMPHOEDEMA [None]
